FAERS Safety Report 9603425 (Version 1)
Quarter: 2013Q4

REPORT INFORMATION
  Report Type: Not Available
  Country: SE (occurrence: SE)
  Receive Date: 20131007
  Receipt Date: 20131007
  Transmission Date: 20140711
  Serious: Yes (Hospitalization, Other)
  Sender: FDA-Public Use
  Company Number: SE-NAPPMUNDI-GBR-2013-0015868

PATIENT
  Age: 87 Year
  Sex: Female

DRUGS (3)
  1. OXYNORM 5 MG KAPSEL, HARD [Suspect]
     Indication: PAIN
     Dosage: 5 MG, BID
     Route: 048
  2. OXYNORM 5 MG KAPSEL, HARD [Suspect]
     Dosage: 5 MG, PRN
     Route: 048
  3. NORSPAN 5 MIKROGRAM/ TIMME DEPOTPLASTER [Suspect]
     Indication: PRODUCT USED FOR UNKNOWN INDICATION
     Dosage: 5 MCG, Q1H
     Route: 062

REACTIONS (3)
  - Depressed level of consciousness [Unknown]
  - Fall [Unknown]
  - Head injury [Unknown]
